FAERS Safety Report 11577870 (Version 11)
Quarter: 2022Q4

REPORT INFORMATION
  Report Type: Spontaneous
  Country: US (occurrence: US)
  Receive Date: 20150930
  Receipt Date: 20221227
  Transmission Date: 20230112
  Serious: Yes (Other)
  Sender: FDA-Public Use
  Company Number: US-PFIZER INC-2015319862

PATIENT
  Age: 17 Year
  Sex: Male
  Weight: 78 kg

DRUGS (5)
  1. BENEFIX [Suspect]
     Active Substance: COAGULATION FACTOR IX RECOMBINANT HUMAN\ISOPROPYL ALCOHOL
     Indication: Factor IX deficiency
     Dosage: UNK
  2. BENEFIX [Suspect]
     Active Substance: COAGULATION FACTOR IX RECOMBINANT HUMAN\ISOPROPYL ALCOHOL
     Indication: Haemorrhage
     Dosage: 9300 IU, AS NEEDED (LNJECT 9,300 UNITS INTO THE VEIN)
     Route: 042
  3. BENEFIX [Suspect]
     Active Substance: COAGULATION FACTOR IX RECOMBINANT HUMAN\ISOPROPYL ALCOHOL
     Dosage: 6000 UNITS EVERY OTHER DAY
     Dates: start: 20150920
  4. BENEFIX [Suspect]
     Active Substance: COAGULATION FACTOR IX RECOMBINANT HUMAN\ISOPROPYL ALCOHOL
     Dosage: 5000 UNITS EVERY OTHER DAY
     Route: 042
  5. BENEFIX [Suspect]
     Active Substance: COAGULATION FACTOR IX RECOMBINANT HUMAN\ISOPROPYL ALCOHOL
     Dosage: 11124 U (+/-10%) DAILY AS NEEDED
     Route: 042

REACTIONS (7)
  - Muscle haemorrhage [Unknown]
  - Fracture [Unknown]
  - Limb injury [Unknown]
  - Haemorrhage [Unknown]
  - Haemarthrosis [Unknown]
  - Osteorrhagia [Unknown]
  - Wound [Unknown]

NARRATIVE: CASE EVENT DATE: 20150918
